FAERS Safety Report 9559282 (Version 1)
Quarter: 2013Q3

REPORT INFORMATION
  Report Type: Spontaneous
  Country: US (occurrence: None)
  Receive Date: 20130906
  Receipt Date: 20130906
  Transmission Date: 20140515
  Serious: Yes (Other)
  Sender: FDA-Public Use
  Company Number: 163-POMAL-13071800

PATIENT
  Age: 71 Year
  Sex: Male

DRUGS (8)
  1. POMALYST [Suspect]
     Indication: PLASMA CELL MYELOMA
     Dosage: 4 MG, 21 IN 21 D PO
     Route: 048
     Dates: start: 20130430
  2. AMLODIPINE BESYLATE(AMLODIPINE BESILATE) [Concomitant]
  3. ASPIRIN(ACETYLSALICYLIC ACID) [Concomitant]
  4. HYDROCODONE/ACETAMINOPHEN(REMEDEINE) [Concomitant]
  5. LISINOPRIL(LISINOPRIL) [Concomitant]
  6. PROPRANOLOL HCL (PROPRANOLOL HYDROCHLORIDE) [Concomitant]
  7. VITAMIN C [Concomitant]
  8. VITAMIN E BLEND(TOCOPHEROL) [Concomitant]

REACTIONS (2)
  - Stomatitis [None]
  - Fatigue [None]
